FAERS Safety Report 5492445-6 (Version None)
Quarter: 2007Q4

REPORT INFORMATION
  Report Type: 
  Country: None (occurrence: None)
  Receive Date: 20071015
  Receipt Date: 20070810
  Transmission Date: 20080405
  Serious: No
  Sender: FDA-Public Use
  Company Number: 2007SP002810

PATIENT
  Age: 78 Year
  Sex: Female
  Weight: 70.7611 kg

DRUGS (10)
  1. LUNESTA [Suspect]
     Indication: INSOMNIA
     Dosage: 3 MG; HS; ORAL, 3 MG; 1X; ORAL
     Route: 048
     Dates: start: 20070801
  2. LUNESTA [Suspect]
     Indication: INSOMNIA
     Dosage: 3 MG; HS; ORAL, 3 MG; 1X; ORAL
     Route: 048
     Dates: start: 20070809
  3. REQUIP [Concomitant]
  4. VYTORIN [Concomitant]
  5. LISINOPRIL [Concomitant]
  6. SYNTHROID [Concomitant]
  7. ATENOLOL [Concomitant]
  8. PLAVIX [Concomitant]
  9. ALPHAGAN [Concomitant]
  10. PROPOXYOHENE NAPSYLATE W/ ACETAMINOPHENE [Concomitant]

REACTIONS (1)
  - INSOMNIA [None]
